FAERS Safety Report 15526724 (Version 1)
Quarter: 2018Q4

REPORT INFORMATION
  Report Type: Spontaneous
  Country: IT (occurrence: IT)
  Receive Date: 20181018
  Receipt Date: 20181018
  Transmission Date: 20190205
  Serious: Yes (Other)
  Sender: FDA-Public Use
  Company Number: IT-SA-2018SA253361

PATIENT
  Age: 20 Year
  Sex: Male

DRUGS (1)
  1. DUPILUMAB [Suspect]
     Active Substance: DUPILUMAB
     Indication: DERMATITIS ATOPIC
     Dosage: 3 DF
     Route: 065

REACTIONS (7)
  - Anal fissure [Recovered/Resolved]
  - Hepatosplenomegaly [Unknown]
  - Haematochezia [Recovered/Resolved]
  - White blood cell count increased [Recovered/Resolved]
  - Coeliac disease [Recovered/Resolved]
  - Haematocrit increased [Recovered/Resolved]
  - Haemoglobin increased [Recovered/Resolved]
